FAERS Safety Report 4912865-5 (Version None)
Quarter: 2006Q1

REPORT INFORMATION
  Report Type: 
  Country: None (occurrence: None)
  Receive Date: 20060215
  Receipt Date: 20050915
  Transmission Date: 20060701
  Serious: Yes (Other)
  Sender: FDA-Public Use
  Company Number: PHBS2005JP13733

PATIENT
  Age: 38 Year
  Sex: Male

DRUGS (10)
  1. LOXONIN [Suspect]
     Dosage: UNK, UNK
     Route: 048
     Dates: end: 20050101
  2. LORAZEPAM [Concomitant]
     Route: 048
  3. CERCINE [Concomitant]
     Route: 048
  4. RISPERDAL [Concomitant]
     Route: 048
  5. AKINETON [Concomitant]
     Route: 048
  6. ZYPREXA [Concomitant]
     Route: 048
  7. SERENACE [Concomitant]
     Route: 048
  8. BENZALIN [Concomitant]
     Route: 048
  9. AMOBAN [Concomitant]
     Route: 048
  10. TEGRETOL [Suspect]
     Indication: POST-TRAUMATIC STRESS DISORDER
     Dosage: 400 MG/DAY
     Route: 048

REACTIONS (5)
  - BLOOD CREATINE PHOSPHOKINASE INCREASED [None]
  - DRUG INTERACTION [None]
  - MYOGLOBIN URINE PRESENT [None]
  - RENAL FAILURE ACUTE [None]
  - RHABDOMYOLYSIS [None]
